FAERS Safety Report 5356902-5 (Version None)
Quarter: 2007Q2

REPORT INFORMATION
  Report Type: 
  Country: None (occurrence: None)
  Receive Date: 20070614
  Receipt Date: 20060510
  Transmission Date: 20071010
  Serious: Yes (Hospitalization)
  Sender: FDA-Public Use
  Company Number: US-ASTRAZENECA-2006UW09298

PATIENT
  Sex: Female

DRUGS (2)
  1. ATACAND HCT [Suspect]
     Indication: BLOOD PRESSURE INADEQUATELY CONTROLLED
     Dosage: 16/12.5 MG
     Route: 048
     Dates: start: 20060505
  2. ATACAND HCT [Suspect]
     Indication: HYPERTENSION
     Dosage: 16/12.5 MG
     Route: 048
     Dates: start: 20060505

REACTIONS (1)
  - MYOCARDIAL INFARCTION [None]
